FAERS Safety Report 17449298 (Version 2)
Quarter: 2020Q1

REPORT INFORMATION
  Report Type: Report from Study
  Country: None (occurrence: US)
  Receive Date: 20200224
  Receipt Date: 20200228
  Transmission Date: 20200409
  Serious: Yes (Other)
  Sender: FDA-Public Use
  Company Number: US-ABBVIE-18K-163-3114751-00

PATIENT
  Age: 80 Year
  Sex: Female

DRUGS (24)
  1. LISINOPRIL. [Concomitant]
     Active Substance: LISINOPRIL
     Indication: PRODUCT USED FOR UNKNOWN INDICATION
  2. AMOXICILLIN. [Concomitant]
     Active Substance: AMOXICILLIN
     Indication: PRODUCT USED FOR UNKNOWN INDICATION
  3. NORVASC [Concomitant]
     Active Substance: AMLODIPINE BESYLATE
     Indication: PRODUCT USED FOR UNKNOWN INDICATION
  4. VITAMIN C [Concomitant]
     Active Substance: ASCORBIC ACID
     Indication: PRODUCT USED FOR UNKNOWN INDICATION
  5. ESTRADIOL. [Concomitant]
     Active Substance: ESTRADIOL
     Indication: PRODUCT USED FOR UNKNOWN INDICATION
  6. TYLENOL [Concomitant]
     Active Substance: ACETAMINOPHEN
     Indication: PRODUCT USED FOR UNKNOWN INDICATION
  7. IMBRUVICA [Suspect]
     Active Substance: IBRUTINIB
     Route: 048
  8. VAGIFEM [Suspect]
     Active Substance: ESTRADIOL
     Indication: PRODUCT USED FOR UNKNOWN INDICATION
     Dosage: UNK
     Route: 065
  9. CRESTOR [Concomitant]
     Active Substance: ROSUVASTATIN CALCIUM
     Indication: PRODUCT USED FOR UNKNOWN INDICATION
  10. CEFDINIR. [Concomitant]
     Active Substance: CEFDINIR
     Indication: PRODUCT USED FOR UNKNOWN INDICATION
  11. IMBRUVICA [Suspect]
     Active Substance: IBRUTINIB
     Indication: CHRONIC LYMPHOCYTIC LEUKAEMIA
     Dosage: 420 MG, QD
     Route: 048
     Dates: start: 20180811
  12. INDAPAMIDE. [Concomitant]
     Active Substance: INDAPAMIDE
     Indication: PRODUCT USED FOR UNKNOWN INDICATION
  13. PANTOPRAZOLE SODIUM. [Concomitant]
     Active Substance: PANTOPRAZOLE SODIUM
     Indication: PRODUCT USED FOR UNKNOWN INDICATION
  14. LEVOTHYROXINE SODIUM. [Concomitant]
     Active Substance: LEVOTHYROXINE SODIUM
     Indication: PRODUCT USED FOR UNKNOWN INDICATION
  15. AUGMENTIN [Concomitant]
     Active Substance: AMOXICILLIN\CLAVULANATE POTASSIUM
     Indication: PRODUCT USED FOR UNKNOWN INDICATION
  16. VITAMIN C [Concomitant]
     Active Substance: ASCORBIC ACID
     Indication: PRODUCT USED FOR UNKNOWN INDICATION
  17. IMBRUVICA [Suspect]
     Active Substance: IBRUTINIB
     Dosage: 420 MG, QD
     Route: 048
     Dates: start: 20180815
  18. IMBRUVICA [Suspect]
     Active Substance: IBRUTINIB
     Dosage: 420 MG, QD
     Route: 048
     Dates: start: 20180805
  19. ASPIR LOW [Concomitant]
     Active Substance: ASPIRIN
     Indication: PRODUCT USED FOR UNKNOWN INDICATION
  20. PREVACID [Concomitant]
     Active Substance: LANSOPRAZOLE
     Indication: PRODUCT USED FOR UNKNOWN INDICATION
  21. PAXIL [Concomitant]
     Active Substance: PAROXETINE HYDROCHLORIDE
     Indication: PRODUCT USED FOR UNKNOWN INDICATION
  22. CYANOCOBALAMIN. [Concomitant]
     Active Substance: CYANOCOBALAMIN
     Indication: PRODUCT USED FOR UNKNOWN INDICATION
  23. LANSOPRAZOLE. [Concomitant]
     Active Substance: LANSOPRAZOLE
     Indication: PRODUCT USED FOR UNKNOWN INDICATION
  24. VITAMIN D-1000 [Concomitant]
     Indication: PRODUCT USED FOR UNKNOWN INDICATION

REACTIONS (44)
  - Drug hypersensitivity [Unknown]
  - Urinary retention [Unknown]
  - Balance disorder [Unknown]
  - Abdominal distension [Unknown]
  - Diarrhoea [Unknown]
  - Myalgia [Unknown]
  - Viral upper respiratory tract infection [Unknown]
  - Joint swelling [Not Recovered/Not Resolved]
  - Haemorrhage urinary tract [Unknown]
  - Visual impairment [Unknown]
  - Irritable bowel syndrome [Unknown]
  - Oropharyngeal pain [Not Recovered/Not Resolved]
  - Cough [Unknown]
  - White blood cell count decreased [Unknown]
  - Urinary tract infection [Unknown]
  - Onychoclasis [Unknown]
  - Oedema peripheral [Not Recovered/Not Resolved]
  - Acne [Unknown]
  - Pain [Unknown]
  - Vulvovaginal pain [Unknown]
  - Scab [Unknown]
  - Palpitations [Recovering/Resolving]
  - Pain in extremity [Unknown]
  - Muscle spasms [Not Recovered/Not Resolved]
  - Abdominal pain upper [Unknown]
  - Abnormal faeces [Unknown]
  - Peripheral coldness [Unknown]
  - Fatigue [Recovering/Resolving]
  - Abdominal discomfort [Recovering/Resolving]
  - Dyspepsia [Unknown]
  - Flatulence [Unknown]
  - Vulvovaginal pruritus [Unknown]
  - Blood sodium decreased [Unknown]
  - Peripheral swelling [Unknown]
  - Cataract [Unknown]
  - Hyperhidrosis [Unknown]
  - Frequent bowel movements [Unknown]
  - Dry mouth [Unknown]
  - Night sweats [Unknown]
  - Dry skin [Not Recovered/Not Resolved]
  - Skin ulcer [Not Recovered/Not Resolved]
  - Gait disturbance [Unknown]
  - Constipation [Unknown]
  - Dyskinesia [Unknown]

NARRATIVE: CASE EVENT DATE: 201808
